FAERS Safety Report 10483563 (Version 1)
Quarter: 2014Q3

REPORT INFORMATION
  Report Type: Spontaneous
  Country: US (occurrence: US)
  Receive Date: 20140930
  Receipt Date: 20140930
  Transmission Date: 20150326
  Serious: Yes (Other)
  Sender: FDA-Public Use
  Company Number: US-JNJFOC-20140920902

PATIENT
  Age: 66 Year
  Sex: Female
  Weight: 81.19 kg

DRUGS (2)
  1. LISTERINE POCKETPAK [Suspect]
     Active Substance: EUCALYPTOL\MENTHOL\METHYL SALICYLATE\THYMOL
     Indication: BREATH ODOUR
     Dosage: 15 STRIPS, 1 AT A TIME WITHIN 24 HOUR PERIOD
     Route: 048
  2. LISTERINE POCKETPAK [Suspect]
     Active Substance: EUCALYPTOL\MENTHOL\METHYL SALICYLATE\THYMOL
     Indication: OROPHARYNGEAL PAIN
     Dosage: 15 STRIPS, 1 AT A TIME WITHIN 24 HOUR PERIOD
     Route: 048

REACTIONS (3)
  - Drug dependence [Unknown]
  - Off label use [Unknown]
  - Therapeutic response changed [Unknown]
